FAERS Safety Report 22294334 (Version 3)
Quarter: 2023Q2

REPORT INFORMATION
  Report Type: Report from Study
  Country: CL (occurrence: CL)
  Receive Date: 20230508
  Receipt Date: 20230612
  Transmission Date: 20230722
  Serious: Yes (Other)
  Sender: FDA-Public Use
  Company Number: CL-002147023-NVSC2023CL102241

PATIENT
  Age: 69 Year
  Sex: Male

DRUGS (2)
  1. COSENTYX [Suspect]
     Active Substance: SECUKINUMAB
     Indication: Psoriatic arthropathy
     Dosage: 150 MG, ONLY DOSE (SINGLES DOSE)
     Route: 058
  2. METHOTREXATE [Concomitant]
     Active Substance: METHOTREXATE
     Indication: Product used for unknown indication
     Dosage: UNK
     Route: 065

REACTIONS (9)
  - Tuberculosis [Unknown]
  - Psoriasis [Unknown]
  - Pruritus [Unknown]
  - Skin injury [Unknown]
  - Skin fissures [Unknown]
  - Skin atrophy [Unknown]
  - General symptom [Unknown]
  - Skin laceration [Unknown]
  - Incorrect dose administered [Unknown]
